FAERS Safety Report 4632811-1 (Version None)
Quarter: 2005Q2

REPORT INFORMATION
  Report Type: 
  Country: None (occurrence: None)
  Receive Date: 20050412
  Receipt Date: 20050404
  Transmission Date: 20051028
  Serious: Yes (Hospitalization)
  Sender: FDA-Public Use
  Company Number: 200512733US

PATIENT
  Age: 48 Year
  Sex: Female

DRUGS (3)
  1. AMARYL [Suspect]
     Dosage: DOSE: UNK
  2. ANTIHYPERTENSIVES [Concomitant]
     Dosage: DOSE: UNK
  3. ACE INHIBITOR NOS [Concomitant]
     Dosage: DOSE: UNK

REACTIONS (2)
  - HYPOGLYCAEMIA [None]
  - INSULINOMA [None]
